FAERS Safety Report 10404605 (Version 1)
Quarter: 2014Q2

REPORT INFORMATION
  Report Type: Spontaneous
  Country: US (occurrence: None)
  Receive Date: 20140530
  Receipt Date: 20140530
  Transmission Date: 20141212
  Serious: Yes (Life-Threatening, Hospitalization)
  Sender: FDA-Public Use
  Company Number: PHEH2014US004713

PATIENT
  Age: 82 Year
  Sex: Female
  Weight: 109.32 kg

DRUGS (6)
  1. AFINITOR (RAD) UNKNOWN [Suspect]
     Indication: BREAST CANCER
     Route: 048
     Dates: start: 20130413, end: 20130619
  2. EXEMASTANE [Concomitant]
  3. GLIMEPIRIDE [Concomitant]
  4. COREG (CARVEDILOL) [Concomitant]
  5. CRESTOR (ROSUVASTATIN CALCIUM) [Concomitant]
  6. LEVOTHYROXINE [Concomitant]

REACTIONS (15)
  - Cardiac failure congestive [None]
  - Dyspnoea [None]
  - Orthopnoea [None]
  - Chest discomfort [None]
  - Oedema peripheral [None]
  - Jugular vein distension [None]
  - Hypertension [None]
  - Pulmonary oedema [None]
  - Ascites [None]
  - Weight increased [None]
  - Fatigue [None]
  - Cough [None]
  - Palpitations [None]
  - Nausea [None]
  - Decreased appetite [None]
